FAERS Safety Report 4320042-4 (Version None)
Quarter: 2004Q1

REPORT INFORMATION
  Report Type: 
  Country: None (occurrence: None)
  Receive Date: 20040315
  Receipt Date: 20031230
  Transmission Date: 20041129
  Serious: No
  Sender: FDA-Public Use
  Company Number: 2004192569US

PATIENT
  Age: 51 Year
  Sex: Female

DRUGS (6)
  1. BEXTRA [Suspect]
     Indication: ARTHROPATHY
     Dosage: 10 MG
     Dates: start: 20031230
  2. ZOLOFT [Concomitant]
  3. ZETIA [Concomitant]
  4. ZOCOR [Concomitant]
  5. ZANTAC [Concomitant]
  6. PREMPRO [Concomitant]

REACTIONS (1)
  - MUSCLE CRAMP [None]
